FAERS Safety Report 23369579 (Version 1)
Quarter: 2024Q1

REPORT INFORMATION
  Report Type: Spontaneous
  Country: CH (occurrence: None)
  Receive Date: 20240105
  Receipt Date: 20240105
  Transmission Date: 20240410
  Serious: Yes (Other)
  Sender: FDA-Public Use
  Company Number: CH-ROCHE-3484441

PATIENT

DRUGS (6)
  1. ACTEMRA [Suspect]
     Active Substance: TOCILIZUMAB
     Indication: Product used for unknown indication
     Route: 065
  2. MIRCERA [Suspect]
     Active Substance: METHOXY POLYETHYLENE GLYCOL-EPOETIN BETA
     Indication: Normochromic normocytic anaemia
     Route: 058
     Dates: start: 20230630
  3. RITUXIMAB [Suspect]
     Active Substance: RITUXIMAB
     Indication: Product used for unknown indication
     Route: 065
     Dates: start: 20230705
  4. CELLCEPT [Suspect]
     Active Substance: MYCOPHENOLATE MOFETIL
     Indication: Product used for unknown indication
     Dosage: DOSAGE MAXIMUM 500 MG 1-0-1 DEPENDING ON TOLERABILITY
     Route: 065
  5. NULOJIX [Suspect]
     Active Substance: BELATACEPT
     Indication: Product used for unknown indication
     Route: 065
  6. SOLIRIS [Suspect]
     Active Substance: ECULIZUMAB
     Indication: Product used for unknown indication
     Route: 065

REACTIONS (6)
  - Chronic allograft nephropathy [Unknown]
  - Kidney fibrosis [Unknown]
  - Renal tubular atrophy [Unknown]
  - Hypertension [Unknown]
  - Anaemia [Unknown]
  - Hyperparathyroidism secondary [Unknown]
